FAERS Safety Report 6145714-0 (Version None)
Quarter: 2009Q2

REPORT INFORMATION
  Report Type: 
  Country: None (occurrence: None)
  Receive Date: 20090406
  Receipt Date: 20090406
  Transmission Date: 20091009
  Serious: No
  Sender: FDA-Public Use
  Company Number: None

PATIENT
  Age: 27 Year
  Sex: Male
  Weight: 70 kg

DRUGS (1)
  1. CEFEPIME [Suspect]
     Dosage: 1 GM IV 112
     Route: 042
     Dates: start: 20090324

REACTIONS (1)
  - RASH [None]
